FAERS Safety Report 5411303-6 (Version None)
Quarter: 2007Q3

REPORT INFORMATION
  Report Type: 
  Country: None (occurrence: None)
  Receive Date: 20070808
  Receipt Date: 20070713
  Transmission Date: 20080115
  Serious: Yes (Hospitalization)
  Sender: FDA-Public Use
  Company Number: IT-1163358

PATIENT
  Age: 72 Year
  Sex: Female

DRUGS (2)
  1. AZOPT [Suspect]
     Indication: GLAUCOMA
     Dosage: EYE DROPS, BID
     Route: 047
     Dates: start: 20050501, end: 20070621
  2. EUTIROX (LEVOTHYROXINE) [Concomitant]

REACTIONS (4)
  - BODY TEMPERATURE DECREASED [None]
  - BRONCHITIS CHRONIC [None]
  - HYPERHIDROSIS [None]
  - LUNG DISORDER [None]
